FAERS Safety Report 15372262 (Version 2)
Quarter: 2022Q1

REPORT INFORMATION
  Report Type: Report from Study
  Country: FR (occurrence: FR)
  Receive Date: 20180911
  Receipt Date: 20220204
  Transmission Date: 20220423
  Serious: Yes (Hospitalization, Other)
  Sender: FDA-Public Use
  Company Number: FR-SHIRE-FR201834023

PATIENT

DRUGS (15)
  1. ONCASPAR [Suspect]
     Active Substance: PEGASPARGASE
     Indication: Acute lymphocytic leukaemia
     Dosage: 1125 IU, 1X/DAY:QD
     Route: 042
     Dates: start: 20180727
  2. VINCRISTINE [Suspect]
     Active Substance: VINCRISTINE
     Indication: Acute lymphocytic leukaemia
     Dosage: 0.6 MG, 1X/DAY:QD
     Route: 042
     Dates: start: 20180723
  3. DAUNORUBICIN [Suspect]
     Active Substance: DAUNORUBICIN
     Indication: Acute lymphocytic leukaemia
     Dosage: 14 MG, 1X/DAY:QD
     Route: 042
     Dates: start: 20180723
  4. METHOTREXATE [Suspect]
     Active Substance: METHOTREXATE
     Indication: Acute lymphocytic leukaemia
     Dosage: 8 MG, 1X/DAY:QD
     Route: 037
     Dates: start: 20180724
  5. CYTARABINE [Suspect]
     Active Substance: CYTARABINE
     Indication: Acute lymphocytic leukaemia
     Dosage: 20 MG, 1X/DAY:QD
     Route: 037
     Dates: start: 20180724
  6. HYDROCORTISONE [Suspect]
     Active Substance: HYDROCORTISONE
     Indication: Acute lymphocytic leukaemia
     Dosage: 10 MG, 1X/DAY:QD
     Route: 037
     Dates: start: 20180724
  7. PREDNISONE [Suspect]
     Active Substance: PREDNISONE
     Indication: Acute lymphocytic leukaemia
     Dosage: 28 MG, 1X/DAY:QD
     Route: 042
     Dates: start: 20180723
  8. FASTURTEC [Concomitant]
     Active Substance: RASBURICASE
     Indication: Blood uric acid increased
  9. SODIUM CHLORIDE [Concomitant]
     Active Substance: SODIUM CHLORIDE
     Indication: Product used for unknown indication
  10. CEFTAZIDIME [Concomitant]
     Active Substance: CEFTAZIDIME
     Indication: Febrile bone marrow aplasia
  11. VANCOMYCIN [Concomitant]
     Active Substance: VANCOMYCIN
     Indication: Product used for unknown indication
  12. AMBISOME [Concomitant]
     Active Substance: AMPHOTERICIN B
     Indication: Neutropenia
  13. AMBISOME [Concomitant]
     Active Substance: AMPHOTERICIN B
     Indication: Prophylaxis
  14. FUROSEMIDE [Concomitant]
     Active Substance: FUROSEMIDE
     Indication: Venoocclusive liver disease
  15. RIVOTRIL [Concomitant]
     Active Substance: CLONAZEPAM
     Indication: Pain

REACTIONS (2)
  - Venoocclusive disease [Recovered/Resolved]
  - Cholestasis [Recovered/Resolved]

NARRATIVE: CASE EVENT DATE: 20180816
